FAERS Safety Report 13646231 (Version 1)
Quarter: 2017Q2

REPORT INFORMATION
  Report Type: Spontaneous
  Country: US (occurrence: US)
  Receive Date: 20170612
  Receipt Date: 20170612
  Transmission Date: 20170830
  Serious: No
  Sender: FDA-Public Use
  Company Number: None

PATIENT

DRUGS (1)
  1. ETOMIDATE INJECTION [Suspect]
     Active Substance: ETOMIDATE

REACTIONS (1)
  - Product label issue [None]

NARRATIVE: CASE EVENT DATE: 20170612
